FAERS Safety Report 6709942-5 (Version None)
Quarter: 2010Q2

REPORT INFORMATION
  Report Type: 
  Country: None (occurrence: None)
  Receive Date: 20100504
  Receipt Date: 20100429
  Transmission Date: 20101027
  Serious: Yes (Other)
  Sender: FDA-Public Use
  Company Number: US-RB-027014-09

PATIENT
  Age: 25 Year
  Sex: Female

DRUGS (4)
  1. SUBUTEX [Suspect]
     Route: 060
     Dates: start: 20091101, end: 20091203
  2. SUBUTEX [Suspect]
     Dosage: DOSING DETAILS UNKNOWN.
     Route: 060
     Dates: end: 20100401
  3. OXYCONTIN [Suspect]
     Dosage: DOSING INFORMATION IS UNKNOWN
     Route: 065
  4. VICODIN [Suspect]
     Dosage: DOSING INFORMATION IS UNKNOWN
     Route: 065

REACTIONS (3)
  - DRUG EXPOSURE DURING PREGNANCY [None]
  - DRUG WITHDRAWAL CONVULSIONS [None]
  - DRUG WITHDRAWAL SYNDROME [None]
